FAERS Safety Report 25068011 (Version 2)
Quarter: 2025Q1

REPORT INFORMATION
  Report Type: Report from Study
  Country: FI (occurrence: FI)
  Receive Date: 20250312
  Receipt Date: 20250318
  Transmission Date: 20250409
  Serious: Yes (Other)
  Sender: MYLAN
  Company Number: FI-MYLANLABS-2024M1116013

PATIENT
  Sex: Male

DRUGS (5)
  1. CLOZAPINE [Suspect]
     Active Substance: CLOZAPINE
     Indication: Schizophrenia
  2. CLOZAPINE [Suspect]
     Active Substance: CLOZAPINE
     Dosage: 350 MILLIGRAM, QD (PER DAY)
     Dates: end: 20250304
  3. CLOZAPINE [Suspect]
     Active Substance: CLOZAPINE
     Dosage: 400 MILLIGRAM, QD (100+150+150 MG DAILY DOSE)
     Dates: end: 20250304
  4. RISPERIDONE [Suspect]
     Active Substance: RISPERIDONE
     Indication: Product used for unknown indication
     Dosage: 0.5 MILLIGRAM, QD (ONCE PER DAY, DURATION OF TREATMENT A COUPLE YEARS)
  5. LITHIUM CARBONATE [Concomitant]
     Active Substance: LITHIUM CARBONATE
     Dosage: 300 MILLIGRAM, QD (IN THE EVENINGS, IN USE OF SEVERAL YEARS)

REACTIONS (3)
  - Neutropenia [Recovered/Resolved]
  - White blood cell count decreased [Recovered/Resolved]
  - Off label use [Recovered/Resolved]

NARRATIVE: CASE EVENT DATE: 20240101
